FAERS Safety Report 7643589-1 (Version None)
Quarter: 2011Q3

REPORT INFORMATION
  Report Type: 
  Country: None (occurrence: None)
  Receive Date: 20110722
  Receipt Date: 20110707
  Transmission Date: 20111222
  Serious: Yes (Hospitalization, Other)
  Sender: FDA-Public Use
  Company Number: 2011MA001991

PATIENT
  Age: 61 Year
  Sex: Female
  Weight: 99.7913 kg

DRUGS (16)
  1. METOCLOPRAMIDE [Suspect]
     Dosage: 10 MG,
     Dates: start: 20030428, end: 20091123
  2. BIDIL [Concomitant]
  3. QUININE SULFATE [Concomitant]
  4. LASIX [Concomitant]
  5. LEVAQUIN [Concomitant]
  6. DARVOCET [Concomitant]
  7. AMITRIPTYLINE HCL [Concomitant]
  8. XANAX [Concomitant]
  9. ATARAX [Concomitant]
  10. SPIRIVA [Concomitant]
  11. REVATIO [Concomitant]
  12. ULTRAM [Concomitant]
  13. NIFEDIPINE [Concomitant]
  14. CELEBREX [Concomitant]
  15. NORFLEX [Concomitant]
  16. LYRICA [Concomitant]

REACTIONS (29)
  - EMOTIONAL DISORDER [None]
  - PULMONARY HYPERTENSION [None]
  - PAIN IN EXTREMITY [None]
  - HAEMATURIA [None]
  - FALL [None]
  - RASH [None]
  - HYPOAESTHESIA [None]
  - TARDIVE DYSKINESIA [None]
  - ANAEMIA [None]
  - ECONOMIC PROBLEM [None]
  - FATIGUE [None]
  - DEPRESSION [None]
  - PAIN [None]
  - ESSENTIAL HYPERTENSION [None]
  - MAMMOGRAM ABNORMAL [None]
  - LIVER DISORDER [None]
  - EXTRAPYRAMIDAL DISORDER [None]
  - OEDEMA PERIPHERAL [None]
  - JOINT STIFFNESS [None]
  - TONGUE DISORDER [None]
  - PNEUMONIA [None]
  - GINGIVAL BLEEDING [None]
  - BACK PAIN [None]
  - BRONCHITIS [None]
  - IMPAIRED GASTRIC EMPTYING [None]
  - APNOEA [None]
  - DYSPNOEA [None]
  - PALLOR [None]
  - DYSKINESIA [None]
